FAERS Safety Report 19896611 (Version 1)
Quarter: 2021Q3

REPORT INFORMATION
  Report Type: Spontaneous
  Country: US (occurrence: US)
  Receive Date: 20210929
  Receipt Date: 20210929
  Transmission Date: 20211014
  Serious: No
  Sender: FDA-Public Use
  Company Number: US-OTSUKA-2020_026049

PATIENT
  Sex: Male

DRUGS (5)
  1. DEPAKOTE [Suspect]
     Active Substance: DIVALPROEX SODIUM
     Indication: SCHIZOAFFECTIVE DISORDER
     Dosage: UNK
     Route: 065
  2. REXULTI [Suspect]
     Active Substance: BREXPIPRAZOLE
     Dosage: 2 MG, UNK
     Route: 065
  3. REXULTI [Suspect]
     Active Substance: BREXPIPRAZOLE
     Indication: SCHIZOAFFECTIVE DISORDER
     Dosage: 2 MG, UNK
     Route: 065
  4. EFFEXOR [Suspect]
     Active Substance: VENLAFAXINE HYDROCHLORIDE
     Indication: SCHIZOAFFECTIVE DISORDER
     Dosage: UNK
     Route: 065
  5. REXULTI [Suspect]
     Active Substance: BREXPIPRAZOLE
     Dosage: 3 MG, UNK
     Route: 065

REACTIONS (5)
  - Hallucination [Unknown]
  - Incorrect dose administered [Unknown]
  - Schizophrenia [Unknown]
  - Product use in unapproved indication [Unknown]
  - Extrapyramidal disorder [Recovering/Resolving]
